FAERS Safety Report 6131187-0 (Version None)
Quarter: 2009Q1

REPORT INFORMATION
  Report Type: 
  Country: None (occurrence: None)
  Receive Date: 20090325
  Receipt Date: 20090317
  Transmission Date: 20090719
  Serious: Yes (Other)
  Sender: FDA-Public Use
  Company Number: JP-ASTRAZENECA-2009AP01989

PATIENT
  Age: 59 Year
  Sex: Female

DRUGS (1)
  1. ANAPEINE INJECTION [Suspect]
     Indication: NERVE BLOCK
     Dosage: DOSE UNKNOWN
     Route: 008

REACTIONS (1)
  - QUADRIPLEGIA [None]
